FAERS Safety Report 9026647 (Version 1)
Quarter: 2013Q1

REPORT INFORMATION
  Report Type: Spontaneous
  Country: US (occurrence: None)
  Receive Date: 20130114
  Receipt Date: 20130114
  Transmission Date: 20140127
  Serious: No
  Sender: FDA-Public Use
  Company Number: None

PATIENT
  Age: 68 Year
  Sex: Female
  Weight: 70.76 kg

DRUGS (1)
  1. CIPROFLOXACIN 500 MG BAY [Suspect]
     Indication: LUNG DISORDER
     Dates: start: 20121107, end: 20121128

REACTIONS (5)
  - Epistaxis [None]
  - Decreased appetite [None]
  - Chromaturia [None]
  - Headache [None]
  - Haemoglobin decreased [None]
